FAERS Safety Report 5312411-0 (Version None)
Quarter: 2007Q2

REPORT INFORMATION
  Report Type: 
  Country: None (occurrence: None)
  Receive Date: 20070430
  Receipt Date: 20070426
  Transmission Date: 20071010
  Serious: Yes (Life-Threatening)
  Sender: FDA-Public Use
  Company Number: 2007AP02499

PATIENT
  Age: 79 Year
  Sex: Female

DRUGS (2)
  1. OMEPRAL [Suspect]
     Indication: REFLUX OESOPHAGITIS
     Route: 048
     Dates: start: 20061201, end: 20070421
  2. HEPARIN [Suspect]

REACTIONS (2)
  - HYPERCOAGULATION [None]
  - PLATELET COUNT DECREASED [None]
